FAERS Safety Report 12495105 (Version 1)
Quarter: 2016Q2

REPORT INFORMATION
  Report Type: Spontaneous
  Country: PL (occurrence: PL)
  Receive Date: 20160624
  Receipt Date: 20160624
  Transmission Date: 20160815
  Serious: Yes (Hospitalization)
  Sender: FDA-Public Use
  Company Number: PL-ACCORD-041795

PATIENT
  Age: 55 Year

DRUGS (4)
  1. GEMCITABINE/GEMCITABINE HYDROCHLORIDE [Suspect]
     Active Substance: GEMCITABINE\GEMCITABINE HYDROCHLORIDE
     Indication: ADENOCARCINOMA PANCREAS
  2. OXYCODONE [Suspect]
     Active Substance: OXYCODONE
     Indication: PAIN
     Dosage: INCREASED DOSE OF OXYCODONE (60 MG DAILY)??OXYCODONE DOSE REDUCED TO 40 MG PER DAY
  3. MORPHINE [Concomitant]
     Active Substance: MORPHINE
     Dosage: TEMPORARILY, NOT MORE OFTEN THAN EVERY FOUR HOURS
  4. OXALIPLATIN. [Suspect]
     Active Substance: OXALIPLATIN
     Indication: ADENOCARCINOMA PANCREAS

REACTIONS (5)
  - Off label use [Unknown]
  - Activities of daily living impaired [None]
  - Gastrointestinal disorder [Recovering/Resolving]
  - Constipation [Recovering/Resolving]
  - Neurotoxicity [Recovering/Resolving]
